FAERS Safety Report 8613646-1 (Version None)
Quarter: 2012Q3

REPORT INFORMATION
  Report Type: 
  Country: None (occurrence: None)
  Receive Date: 20120823
  Receipt Date: 20120809
  Transmission Date: 20120928
  Serious: Yes (Death)
  Sender: FDA-Public Use
  Company Number: FR-009507513-1208FRA006617

PATIENT

DRUGS (11)
  1. REPAGLINIDE [Suspect]
     Dosage: 6 MG, QD
     Route: 048
     Dates: start: 20120116
  2. METFORMIN HCL [Suspect]
     Indication: TYPE 2 DIABETES MELLITUS
     Dosage: 700 MG, QD
     Route: 048
     Dates: start: 20110923, end: 20120116
  3. LANTUS [Suspect]
  4. DIAMICRON [Suspect]
     Dosage: 30 MG, QD
     Route: 048
     Dates: start: 20110923, end: 20120116
  5. JANUVIA [Suspect]
     Indication: TYPE 2 DIABETES MELLITUS
     Dosage: 100 MG, QD
     Route: 048
     Dates: start: 20110923, end: 20120116
  6. METFORMIN HYDROCHLORIDE [Suspect]
     Dosage: 2 DF, QD
     Route: 048
     Dates: start: 20110116
  7. LANTUS [Suspect]
     Indication: TYPE 2 DIABETES MELLITUS
     Dosage: 32 IU, QD
     Route: 058
     Dates: start: 20110923, end: 20120116
  8. METFORMIN HCL [Suspect]
     Indication: TYPE 2 DIABETES MELLITUS
     Dosage: 1000 MG, QD
     Route: 048
     Dates: start: 20100201, end: 20110923
  9. REPAGLINIDE [Suspect]
     Indication: TYPE 2 DIABETES MELLITUS
     Dosage: 12 MG, QD
     Route: 048
     Dates: start: 20100528, end: 20110923
  10. METFORMIN HYDROCHLORIDE [Suspect]
     Indication: TYPE 2 DIABETES MELLITUS
     Dosage: 2 DF, QD
     Route: 048
     Dates: start: 20100929, end: 20110923
  11. SITAGLIPTIN PHOSPHATE/METFORMIN HYDROCHLORIDE [Suspect]
     Indication: TYPE 2 DIABETES MELLITUS
     Dosage: 2 DF, QD
     Route: 048
     Dates: start: 20100201, end: 20100929

REACTIONS (2)
  - DEATH [None]
  - NEOPLASM [None]
